FAERS Safety Report 17953394 (Version 1)
Quarter: 2020Q2

REPORT INFORMATION
  Report Type: Spontaneous
  Country: DE (occurrence: DE)
  Receive Date: 20200628
  Receipt Date: 20200628
  Transmission Date: 20200714
  Serious: Yes (Death, Life-Threatening, Other)
  Sender: FDA-Public Use
  Company Number: NVSC2020DE176860

PATIENT
  Age: 64 Year
  Sex: Male
  Weight: 68 kg

DRUGS (1)
  1. MTX 10 HEXAL TABLET [Suspect]
     Active Substance: METHOTREXATE SODIUM
     Indication: POLYMYALGIA RHEUMATICA
     Dosage: 10 MG, QW
     Route: 048
     Dates: start: 201909, end: 202003

REACTIONS (15)
  - Musculoskeletal pain [Unknown]
  - General physical health deterioration [Unknown]
  - Chills [Unknown]
  - Blood urea increased [Unknown]
  - Pain in extremity [Unknown]
  - Acute kidney injury [Unknown]
  - Oral pain [Unknown]
  - Pyrexia [Unknown]
  - Pancytopenia [Fatal]
  - Febrile neutropenia [Unknown]
  - Back pain [Unknown]
  - Inflammatory marker increased [Unknown]
  - Disturbance in attention [Unknown]
  - Weight decreased [Unknown]
  - Oral discomfort [Unknown]

NARRATIVE: CASE EVENT DATE: 202003
